FAERS Safety Report 9299325 (Version 2)
Quarter: 2013Q2

REPORT INFORMATION
  Report Type: Spontaneous
  Country: US (occurrence: US)
  Receive Date: 20130520
  Receipt Date: 20130611
  Transmission Date: 20140414
  Serious: Yes (Hospitalization)
  Sender: FDA-Public Use
  Company Number: US-GILEAD-2013-0075337

PATIENT
  Sex: Male

DRUGS (3)
  1. LETAIRIS [Suspect]
     Indication: PRODUCT USED FOR UNKNOWN INDICATION
     Dosage: 5 MG, QD
     Dates: start: 20130417
  2. EPOPROSTENOL [Concomitant]
     Indication: PRODUCT USED FOR UNKNOWN INDICATION
  3. EPOPROSTENOL [Concomitant]

REACTIONS (4)
  - Pyrexia [Unknown]
  - Chills [Unknown]
  - Pneumonia [Unknown]
  - Dyspnoea [Unknown]
